FAERS Safety Report 4852821-9 (Version None)
Quarter: 2005Q4

REPORT INFORMATION
  Report Type: 
  Country: None (occurrence: None)
  Receive Date: 20051212
  Receipt Date: 20051212
  Transmission Date: 20060501
  Serious: Yes (Other)
  Sender: FDA-Public Use
  Company Number: None

PATIENT
  Age: 50 Year
  Sex: Female
  Weight: 72.5755 kg

DRUGS (1)
  1. EFFEXOR [Suspect]

REACTIONS (4)
  - EMOTIONAL DISORDER [None]
  - PARTNER STRESS [None]
  - PERSONALITY CHANGE [None]
  - WEIGHT INCREASED [None]
